FAERS Safety Report 5689667-8 (Version None)
Quarter: 2008Q1

REPORT INFORMATION
  Report Type: 
  Country: None (occurrence: None)
  Receive Date: 20080331
  Receipt Date: 20080324
  Transmission Date: 20080703
  Serious: Yes (Hospitalization)
  Sender: FDA-Public Use
  Company Number: US-GILEAD-2008-0015781

PATIENT
  Sex: Female
  Weight: 39.3 kg

DRUGS (5)
  1. ATRIPLA [Suspect]
     Indication: HIV INFECTION
     Route: 048
     Dates: start: 20070110
  2. KALETRA [Suspect]
     Indication: HIV INFECTION
     Dates: start: 20070110
  3. ALENDRONATE SODIUM [Concomitant]
  4. OMEPRAZOLE [Concomitant]
  5. CALCIUM/VITAMIN D [Concomitant]

REACTIONS (1)
  - FANCONI SYNDROME [None]
